FAERS Safety Report 15968524 (Version 1)
Quarter: 2019Q1

REPORT INFORMATION
  Report Type: Report from Study
  Country: US (occurrence: US)
  Receive Date: 20190215
  Receipt Date: 20190215
  Transmission Date: 20190418
  Serious: Yes (Other)
  Sender: FDA-Public Use
  Company Number: US-JNJFOC-20190211147

PATIENT

DRUGS (1)
  1. IBRUTINIB [Suspect]
     Active Substance: IBRUTINIB
     Indication: NON-HODGKIN^S LYMPHOMA
     Route: 048

REACTIONS (23)
  - Gastrointestinal haemorrhage [Unknown]
  - Febrile neutropenia [Unknown]
  - Nausea [Unknown]
  - Diarrhoea [Unknown]
  - Muscular weakness [Unknown]
  - Infection [Unknown]
  - Headache [Unknown]
  - Cough [Unknown]
  - Haemorrhage [Unknown]
  - Myalgia [Unknown]
  - Dyspnoea [Unknown]
  - Rash [Unknown]
  - Drug interaction [Unknown]
  - Surgery [Unknown]
  - Pneumonia [Unknown]
  - Fatigue [Unknown]
  - Palpitations [Unknown]
  - Renal failure [Unknown]
  - Oedema peripheral [Unknown]
  - Paraesthesia [Unknown]
  - Thrombocytopenia [Unknown]
  - Arthralgia [Unknown]
  - Anaemia [Unknown]
